FAERS Safety Report 6565455-5 (Version None)
Quarter: 2010Q1

REPORT INFORMATION
  Report Type: 
  Country: None (occurrence: None)
  Receive Date: 20100201
  Receipt Date: 20100127
  Transmission Date: 20100710
  Serious: Yes (Life-Threatening)
  Sender: FDA-Public Use
  Company Number: PHHO2009FR12826

PATIENT
  Sex: Female
  Weight: 57 kg

DRUGS (10)
  1. STI571/CGP57148B T35717+TAB [Suspect]
     Indication: ACUTE LYMPHOCYTIC LEUKAEMIA
     Dosage: UNK
     Dates: end: 20091007
  2. BACTRIM [Suspect]
  3. VINCRISTINE [Concomitant]
     Indication: ACUTE LYMPHOCYTIC LEUKAEMIA
  4. DEXAMETHASONE [Concomitant]
     Indication: ACUTE LYMPHOCYTIC LEUKAEMIA
  5. METHOTREXATE [Concomitant]
     Indication: ACUTE LYMPHOCYTIC LEUKAEMIA
  6. ARA-C [Concomitant]
     Indication: ACUTE LYMPHOCYTIC LEUKAEMIA
  7. DEPO-MEDROL [Concomitant]
  8. ZELITREX [Concomitant]
  9. TOPALGIC [Concomitant]
     Indication: PAIN
  10. VOGALENE [Concomitant]
     Indication: NAUSEA

REACTIONS (11)
  - ANURIA [None]
  - DEHYDRATION [None]
  - DERMATITIS EXFOLIATIVE [None]
  - DRUG RASH WITH EOSINOPHILIA AND SYSTEMIC SYMPTOMS [None]
  - HYPERKALAEMIA [None]
  - HYPOVOLAEMIC SHOCK [None]
  - LEUKOCYTOSIS [None]
  - LYMPHADENOPATHY [None]
  - MYELOCYTOSIS [None]
  - OLIGURIA [None]
  - RENAL FAILURE [None]
